FAERS Safety Report 18324988 (Version 2)
Quarter: 2022Q2

REPORT INFORMATION
  Report Type: Spontaneous
  Country: US (occurrence: US)
  Receive Date: 20200929
  Receipt Date: 20220422
  Transmission Date: 20220721
  Serious: No
  Sender: FDA-Public Use
  Company Number: US-PFIZER INC-2020371043

PATIENT
  Age: 57 Year
  Sex: Female
  Weight: 70.31 kg

DRUGS (9)
  1. CHANTIX [Suspect]
     Active Substance: VARENICLINE TARTRATE
     Indication: Smoking cessation therapy
     Dosage: 0.5 MG, 2X/DAY (IN THE MORNING AND NIGHT; STARTER)
  2. CHANTIX [Suspect]
     Active Substance: VARENICLINE TARTRATE
     Dosage: 1 MG, 2X/DAY (ONCE IN THE MORNING AND ONCE IN THE EVENING)
     Dates: start: 202003
  3. CHANTIX [Suspect]
     Active Substance: VARENICLINE TARTRATE
     Dosage: UNK
  4. LEXAPRO [Concomitant]
     Active Substance: ESCITALOPRAM OXALATE
     Indication: Anxiety
     Dosage: 20 MG, AT NIGHT
  5. LEXAPRO [Concomitant]
     Active Substance: ESCITALOPRAM OXALATE
     Indication: Depression
  6. LORAZEPAM [Concomitant]
     Active Substance: LORAZEPAM
     Indication: Anxiety
     Dosage: 1 MG, AS NEEDED (2 TO 3 TIMES A DAY)
  7. LORAZEPAM [Concomitant]
     Active Substance: LORAZEPAM
     Indication: Depression
  8. ATIVAN [Concomitant]
     Active Substance: LORAZEPAM
     Dosage: UNK
  9. HYDROCODONE [Concomitant]
     Active Substance: HYDROCODONE
     Indication: Back disorder
     Dosage: 7.5/ 3.25, 3X/DAY

REACTIONS (6)
  - Nausea [Unknown]
  - Somnolence [Unknown]
  - Oropharyngeal pain [Unknown]
  - Prescription drug used without a prescription [Unknown]
  - Recalled product administered [Unknown]
  - Intentional dose omission [Unknown]
